FAERS Safety Report 25591482 (Version 1)
Quarter: 2025Q3

REPORT INFORMATION
  Report Type: Spontaneous
  Country: CH (occurrence: CH)
  Receive Date: 20250722
  Receipt Date: 20250722
  Transmission Date: 20251021
  Serious: Yes (Hospitalization, Other)
  Sender: GLAXOSMITHKLINE
  Company Number: None

PATIENT
  Age: 8 Year
  Sex: Female
  Weight: 26 kg

DRUGS (4)
  1. LAMICTAL [Suspect]
     Active Substance: LAMOTRIGINE
     Indication: Petit mal epilepsy
  2. LAMICTAL [Suspect]
     Active Substance: LAMOTRIGINE
     Dosage: 15 MG, BID ( DOSE 15MG 2X/DAY)
  3. VALPROATE SODIUM [Concomitant]
     Active Substance: VALPROATE SODIUM
     Indication: Petit mal epilepsy
     Dosage: 300 MG, BID
  4. VALPROATE SODIUM [Concomitant]
     Active Substance: VALPROATE SODIUM
     Indication: Petit mal epilepsy
     Dosage: 300 MG, BID
     Route: 065

REACTIONS (3)
  - Drug reaction with eosinophilia and systemic symptoms [Recovering/Resolving]
  - Arthralgia [Unknown]
  - Abdominal pain [Unknown]

NARRATIVE: CASE EVENT DATE: 20250605
